FAERS Safety Report 4439023-5 (Version None)
Quarter: 2004Q3

REPORT INFORMATION
  Report Type: 
  Country: None (occurrence: None)
  Receive Date: 20040901
  Receipt Date: 20040820
  Transmission Date: 20050211
  Serious: Yes (Life-Threatening)
  Sender: FDA-Public Use
  Company Number: GB-BRISTOL-MYERS SQUIBB COMPANY-12677449

PATIENT
  Age: 38 Year
  Sex: Female
  Weight: 65 kg

DRUGS (7)
  1. CEPHRADINE [Suspect]
     Indication: PROPHYLAXIS
     Route: 042
     Dates: start: 20040810, end: 20040810
  2. PROPOFOL [Concomitant]
     Indication: HEAD INJURY
     Dosage: 20 MG/ML
     Route: 042
     Dates: start: 20040807
  3. PROPOFOL [Concomitant]
     Indication: INTRACRANIAL PRESSURE INCREASED
     Dosage: 20 MG/ML
     Route: 042
     Dates: start: 20040807
  4. FENTANYL [Concomitant]
     Indication: INTRACRANIAL PRESSURE INCREASED
     Dosage: 50 MG/ML
     Route: 042
     Dates: start: 20040807
  5. FENTANYL [Concomitant]
     Indication: HEAD INJURY
     Dosage: 50 MG/ML
     Route: 042
     Dates: start: 20040807
  6. NORADRENALINE [Concomitant]
     Indication: INTRACRANIAL PRESSURE INCREASED
     Dosage: 4 MG/50 ML
     Route: 042
     Dates: start: 20040807
  7. NORADRENALINE [Concomitant]
     Indication: HEAD INJURY
     Dosage: 4 MG/50 ML
     Route: 042
     Dates: start: 20040807

REACTIONS (1)
  - ANAPHYLACTIC REACTION [None]
